FAERS Safety Report 7606703-X (Version None)
Quarter: 2011Q3

REPORT INFORMATION
  Report Type: 
  Country: None (occurrence: None)
  Receive Date: 20110705
  Receipt Date: 20110629
  Transmission Date: 20111222
  Serious: Yes (Death, Other)
  Sender: FDA-Public Use
  Company Number: 2010SP010238

PATIENT
  Age: 75 Year
  Sex: Male
  Weight: 80 kg

DRUGS (4)
  1. TANATRIL [Concomitant]
  2. PHENYTOIN [Suspect]
     Indication: PROPHYLAXIS
     Dosage: PO
     Route: 048
     Dates: start: 20060922, end: 20070109
  3. NORVASC [Concomitant]
  4. TEMODAL [Suspect]
     Indication: GLIOBLASTOMA MULTIFORME
     Dosage: 75 MG/M2;QD;PO
     Route: 048
     Dates: start: 20061018, end: 20081128

REACTIONS (3)
  - HEPATIC CIRRHOSIS [None]
  - HEPATITIS B [None]
  - CONDITION AGGRAVATED [None]
